FAERS Safety Report 9570185 (Version 1)
Quarter: 2013Q3

REPORT INFORMATION
  Report Type: Spontaneous
  Country: US (occurrence: US)
  Receive Date: 20130930
  Receipt Date: 20130930
  Transmission Date: 20140515
  Serious: No
  Sender: FDA-Public Use
  Company Number: US-AMGEN-USASP2013064354

PATIENT
  Age: 62 Year
  Sex: Male
  Weight: 124.7 kg

DRUGS (19)
  1. ENBREL [Suspect]
     Indication: PRODUCT USED FOR UNKNOWN INDICATION
     Dosage: 50 MG, QWK
     Route: 058
  2. LASIX                              /00032601/ [Concomitant]
     Dosage: 20 MG, UNK
  3. LACTULOSE [Concomitant]
     Dosage: 10 GM/15
  4. IMDUR [Concomitant]
     Dosage: 120 MG, UNK
  5. PRAVASTATIN [Concomitant]
     Dosage: 10 MG, UNK
  6. SIMVASTATIN [Concomitant]
     Dosage: 10 MG, UNK
  7. CARBIDOPA/LEVODOPA [Concomitant]
     Dosage: 25-100 MG
  8. NOVOLIN R [Concomitant]
     Dosage: UNK
  9. LEVOTHYROXIN [Concomitant]
     Dosage: 125 MCG
  10. SPIRONOLACTON [Concomitant]
     Dosage: 25 MG, UNK
  11. ZINC SULFATE [Concomitant]
     Dosage: 220 MG, UNK
  12. PRAMIPEXOLE [Concomitant]
     Dosage: 1.5 MG, UNK
  13. MAGNESIUM OXIDE [Concomitant]
     Dosage: 400 MG, UNK
  14. MULTIVITAMINS, PLAIN [Concomitant]
     Dosage: UNK
  15. FOLIC ACID [Concomitant]
     Dosage: UNK
  16. VITAMIN B6 [Concomitant]
     Dosage: 250 MG, UNK
  17. PLAVIX [Concomitant]
     Dosage: 300 MG, UNK
  18. POTASSIUM CHLORIDE [Concomitant]
     Dosage: 10 MEQ, UNK
  19. MELATONIN [Concomitant]
     Dosage: 10 MG, UNK

REACTIONS (1)
  - Drug ineffective [Unknown]
